FAERS Safety Report 4751004-0 (Version None)
Quarter: 2005Q3

REPORT INFORMATION
  Report Type: 
  Country: None (occurrence: None)
  Receive Date: 20050824
  Receipt Date: 20050811
  Transmission Date: 20060218
  Serious: Yes (Disabling)
  Sender: FDA-Public Use
  Company Number: US-BOEHRINGER INGELHEIM PHARMACEUTICALS, INC.-2005-BP-13864BP

PATIENT
  Sex: Male

DRUGS (2)
  1. TIPRANAVIR / RITONAVIR CAPSULES [Suspect]
     Indication: HIV INFECTION
     Dosage: TPV/RTV: 1000/400 MG
     Route: 048
     Dates: start: 20050401, end: 20050701
  2. TRUVADA [Concomitant]
     Indication: HIV INFECTION
     Dosage: 200/500MG A DAY
     Route: 048
     Dates: start: 20050401

REACTIONS (5)
  - FALL [None]
  - HYPERSENSITIVITY [None]
  - MUSCLE ATROPHY [None]
  - PARAESTHESIA [None]
  - SKIN EXFOLIATION [None]
